FAERS Safety Report 9435009 (Version 1)
Quarter: 2013Q3

REPORT INFORMATION
  Report Type: Spontaneous
  Country: IT (occurrence: IT)
  Receive Date: 20130801
  Receipt Date: 20130801
  Transmission Date: 20140515
  Serious: Yes (Life-Threatening)
  Sender: FDA-Public Use
  Company Number: IT-TEVA-421336ISR

PATIENT
  Age: 85 Year
  Sex: Female
  Weight: 50 kg

DRUGS (3)
  1. CLOPIDOGREL TEVA 75MG [Suspect]
     Dosage: 75 MILLIGRAM DAILY;
     Route: 048
     Dates: start: 20130501
  2. CARDIOASPIRIN 100MG [Concomitant]
     Dosage: 100 MILLIGRAM DAILY; GASTRO-RESISTANT TABLETS
     Route: 048
     Dates: start: 20130501
  3. TORVAST 20MG [Concomitant]
     Dosage: 20 MILLIGRAM DAILY;
     Route: 048
     Dates: start: 20130501

REACTIONS (3)
  - Neutropenia [Recovering/Resolving]
  - Hepatitis acute [Recovering/Resolving]
  - Rash pruritic [Recovering/Resolving]
